FAERS Safety Report 5899866-8 (Version None)
Quarter: 2008Q3

REPORT INFORMATION
  Report Type: 
  Country: None (occurrence: None)
  Receive Date: 20080926
  Receipt Date: 20080724
  Transmission Date: 20090109
  Serious: No
  Sender: FDA-Public Use
  Company Number: US-BAYER-200829654NA

PATIENT
  Age: 23 Year
  Sex: Female
  Weight: 115 kg

DRUGS (3)
  1. MIRENA [Suspect]
     Indication: DRUG USE FOR UNKNOWN INDICATION
     Route: 015
     Dates: start: 20061101, end: 20070201
  2. MIRENA [Suspect]
     Route: 015
     Dates: start: 20070201, end: 20070801
  3. MIRENA [Suspect]
     Route: 015
     Dates: start: 20070901

REACTIONS (2)
  - INTRA-UTERINE CONTRACEPTIVE DEVICE EXPELLED [None]
  - VAGINITIS BACTERIAL [None]
